FAERS Safety Report 13881568 (Version 2)
Quarter: 2017Q3

REPORT INFORMATION
  Report Type: Spontaneous
  Country: FI (occurrence: FI)
  Receive Date: 20170818
  Receipt Date: 20170901
  Transmission Date: 20171127
  Serious: Yes (Other)
  Sender: FDA-Public Use
  Company Number: FI-AUROBINDO-AUR-APL-2017-37612

PATIENT
  Age: 20 Year
  Sex: Male

DRUGS (6)
  1. SERONIL [Suspect]
     Active Substance: FLUOXETINE HYDROCHLORIDE
     Indication: PRODUCT USED FOR UNKNOWN INDICATION
     Dosage: 40 MG, UNK
     Route: 065
     Dates: end: 20170302
  2. KETIPINOR [Suspect]
     Active Substance: QUETIAPINE FUMARATE
     Indication: PRODUCT USED FOR UNKNOWN INDICATION
     Dosage: UNK
     Route: 065
     Dates: start: 2014, end: 2014
  3. KETIPINOR [Suspect]
     Active Substance: QUETIAPINE FUMARATE
     Dosage: UNK
     Route: 065
     Dates: end: 2016
  4. OLANZAPINE ORION [Suspect]
     Active Substance: OLANZAPINE
     Indication: OBSESSIVE-COMPULSIVE DISORDER
     Dosage: 10 MG, ONCE A DAY
     Route: 048
     Dates: start: 2016, end: 20170302
  5. SERONIL [Suspect]
     Active Substance: FLUOXETINE HYDROCHLORIDE
     Dosage: 20 MG, ONCE A DAY
     Route: 065
     Dates: start: 20170629, end: 2017
  6. KETIPINOR [Suspect]
     Active Substance: QUETIAPINE FUMARATE
     Dosage: 25-75 MG
     Route: 065
     Dates: start: 201706, end: 201706

REACTIONS (4)
  - Mental impairment [Not Recovered/Not Resolved]
  - Suffocation feeling [Not Recovered/Not Resolved]
  - Dysphagia [Not Recovered/Not Resolved]
  - Weight decreased [Not Recovered/Not Resolved]

NARRATIVE: CASE EVENT DATE: 201612
